FAERS Safety Report 24420353 (Version 2)
Quarter: 2024Q4

REPORT INFORMATION
  Report Type: Report from Study
  Country: US (occurrence: US)
  Receive Date: 20241010
  Receipt Date: 20241018
  Transmission Date: 20250114
  Serious: No
  Sender: ROCHE
  Company Number: US-ROCHE-3548588

PATIENT
  Age: 45 Year
  Sex: Female

DRUGS (1)
  1. CATHFLO ACTIVASE [Suspect]
     Active Substance: ALTEPLASE
     Indication: Thrombosis
     Dosage: DATE OF SERVICE REPORTED ON 28/MAR/2024
     Route: 065
     Dates: start: 20240328

REACTIONS (2)
  - Off label use [Unknown]
  - No adverse event [Unknown]
